FAERS Safety Report 23795244 (Version 1)
Quarter: 2024Q2

REPORT INFORMATION
  Report Type: Spontaneous
  Country: CH (occurrence: CH)
  Receive Date: 20240429
  Receipt Date: 20240429
  Transmission Date: 20240716
  Serious: Yes (Death, Life-Threatening, Hospitalization)
  Sender: FDA-Public Use
  Company Number: None

PATIENT
  Sex: Male
  Weight: 3 kg

DRUGS (15)
  1. OXAZEPAM [Suspect]
     Active Substance: OXAZEPAM
     Indication: Product used for unknown indication
     Dosage: 15 MILLIGRAM (AS NECESSARY, ~INGREDIENT (OXAZEPAM) 15MG)
     Route: 065
     Dates: start: 20230406, end: 20230415
  2. OXAZEPAM [Suspect]
     Active Substance: OXAZEPAM
     Dosage: 30 MILLIGRAM, QD (INGREDIENT (OXAZEPAM): 15MG)
     Route: 065
     Dates: start: 20230416, end: 20230424
  3. OXAZEPAM [Suspect]
     Active Substance: OXAZEPAM
     Dosage: 15 MILLIGRAM, QD
     Route: 065
     Dates: start: 20230425, end: 20230430
  4. OXAZEPAM [Suspect]
     Active Substance: OXAZEPAM
     Dosage: 15 MILLIGRAM (AS NECESSARY, ~INGREDIENT (OXAZEPAM) 15MG)
     Route: 065
     Dates: start: 20230525
  5. METOCLOPRAMIDE [Suspect]
     Active Substance: METOCLOPRAMIDE
     Indication: Product used for unknown indication
     Dosage: 10 MILLIGRAM, QD
     Route: 065
     Dates: start: 20230401, end: 20230415
  6. SERTRALINE [Suspect]
     Active Substance: SERTRALINE HYDROCHLORIDE
     Indication: Product used for unknown indication
     Dosage: 50 MILLIGRAM, QD
     Route: 065
     Dates: start: 20230525
  7. CIPROFLOXACIN [Suspect]
     Active Substance: CIPROFLOXACIN
     Indication: Product used for unknown indication
     Dosage: 500 MILLIGRAM, BID
     Route: 065
     Dates: start: 20230408, end: 20230410
  8. METRONIDAZOLE [Suspect]
     Active Substance: METRONIDAZOLE
     Indication: Product used for unknown indication
     Dosage: 500 MILLIGRAM, TID
     Route: 065
     Dates: start: 20230429, end: 20230508
  9. HUMATIN [Suspect]
     Active Substance: PAROMOMYCIN SULFATE
     Indication: Product used for unknown indication
     Dosage: 500 MILLIGRAM, TID
     Route: 065
     Dates: start: 20230509, end: 20230515
  10. HERBALS [Suspect]
     Active Substance: HERBALS
     Indication: Product used for unknown indication
     Dosage: UNK
     Route: 065
     Dates: start: 20230401, end: 20230415
  11. ESOMEPRAZOLE [Suspect]
     Active Substance: ESOMEPRAZOLE
     Indication: Product used for unknown indication
     Dosage: 40 MILLIGRAM, QD
     Route: 065
     Dates: start: 20230415, end: 20230424
  12. PERENTEROL [Suspect]
     Active Substance: SACCHAROMYCES CEREVISIAE
     Indication: Product used for unknown indication
     Dosage: UNK
     Route: 065
     Dates: start: 20230408, end: 20230410
  13. CAFFEINE\MECLIZINE MONOHYDROCHLORIDE\PYRIDOXINE HYDROCHLORIDE [Suspect]
     Active Substance: CAFFEINE\MECLIZINE MONOHYDROCHLORIDE\PYRIDOXINE HYDROCHLORIDE
     Indication: Product used for unknown indication
     Dosage: 1 DOSAGE FORM (IN TOTAL)
     Route: 065
     Dates: start: 20230330, end: 20230330
  14. NITROFURANTOIN [Suspect]
     Active Substance: NITROFURANTOIN
     Indication: Product used for unknown indication
     Dosage: 100 MILLIGRAM, QD
     Route: 065
     Dates: start: 20231108
  15. ASPIRIN [Suspect]
     Active Substance: ASPIRIN
     Indication: Product used for unknown indication
     Dosage: UNK
     Route: 065
     Dates: start: 2023, end: 20231213

REACTIONS (8)
  - Hypovolaemic shock [Fatal]
  - Foetal anaemia [Fatal]
  - Shock haemorrhagic [Fatal]
  - Haemorrhage foetal [Fatal]
  - Neonatal asphyxia [Unknown]
  - Hypoxic ischaemic encephalopathy neonatal [Not Recovered/Not Resolved]
  - Neonatal multi-organ failure [Not Recovered/Not Resolved]
  - Foetal exposure during pregnancy [Recovered/Resolved]

NARRATIVE: CASE EVENT DATE: 20230418
